FAERS Safety Report 8978090 (Version 1)
Quarter: 2013Q1

REPORT INFORMATION
  Report Type: Spontaneous
  Country: US (occurrence: None)
  Receive Date: 20121218
  Receipt Date: 20121218
  Transmission Date: 20140127
  Serious: No
  Sender: FDA-Public Use
  Company Number: None

PATIENT
  Sex: Male

DRUGS (2)
  1. NOVOLOG [Suspect]
  2. NOVOLOG MIX 70/30 [Suspect]

REACTIONS (1)
  - Drug dispensing error [None]
